FAERS Safety Report 23777473 (Version 2)
Quarter: 2024Q2

REPORT INFORMATION
  Report Type: Spontaneous
  Country: US (occurrence: US)
  Receive Date: 20240424
  Receipt Date: 20240501
  Transmission Date: 20240716
  Serious: Yes (Other)
  Sender: FDA-Public Use
  Company Number: US-AMERICAN REGENT INC-2024001436

PATIENT
  Age: 37 Year
  Sex: Female

DRUGS (1)
  1. EPINEPHRINE [Suspect]
     Active Substance: EPINEPHRINE
     Indication: Local anaesthesia
     Dosage: 10 MILLIGRAM
     Route: 058

REACTIONS (5)
  - Ischaemic stroke [Unknown]
  - Toxicity to various agents [Unknown]
  - Stress cardiomyopathy [Unknown]
  - Medication error [Unknown]
  - Product use in unapproved indication [Unknown]
